FAERS Safety Report 20744167 (Version 1)
Quarter: 2022Q2

REPORT INFORMATION
  Report Type: Spontaneous
  Country: ES (occurrence: ES)
  Receive Date: 20220425
  Receipt Date: 20220425
  Transmission Date: 20220721
  Serious: Yes (Other)
  Sender: FDA-Public Use
  Company Number: None

PATIENT
  Age: 50 Year
  Sex: Male

DRUGS (5)
  1. ATROVENT [Suspect]
     Active Substance: IPRATROPIUM BROMIDE
     Indication: Product used for unknown indication
     Route: 055
     Dates: start: 20220328, end: 20220330
  2. GIBITER EASYHALER 160 MICROGRAMOS/4,5 MICROGRAMOS/INHALACION POLVO PAR [Concomitant]
     Indication: Product used for unknown indication
     Dosage: 2 DOSAGE FORM
     Route: 055
     Dates: start: 20220221
  3. PARACETAMOL CINFA 1 g COMPRIMIDOS EFG , 40 comprimidos [Concomitant]
     Indication: Product used for unknown indication
     Route: 048
     Dates: start: 20200227
  4. INDAPAMIDA RETARD CINFA 1,5 mg COMPRIMIDOS DE LIBERACION PROLONGADA EF [Concomitant]
     Indication: Hypertension
     Route: 048
     Dates: start: 20201007
  5. ACOVIL 10 mg COMPRIMIDOS , 28 comprimidos [Concomitant]
     Indication: Hypertension
     Route: 047
     Dates: start: 20170307

REACTIONS (2)
  - Oesophageal spasm [Recovered/Resolved]
  - Chest pain [Recovered/Resolved]

NARRATIVE: CASE EVENT DATE: 20220330
